FAERS Safety Report 8745621 (Version 2)
Quarter: 2013Q4

REPORT INFORMATION
  Report Type: Spontaneous
  Country: US (occurrence: US)
  Receive Date: 20120826
  Receipt Date: 20131101
  Transmission Date: 20140711
  Serious: No
  Sender: FDA-Public Use
  Company Number: US-009507513-1207USA004089

PATIENT
  Age: 60 Year
  Sex: Female
  Weight: 93 kg

DRUGS (2)
  1. INTEGRILIN [Suspect]
     Dosage: 7.9 ML, ONCE
     Dates: start: 20120711, end: 20120711
  2. INTEGRILIN [Suspect]
     Dosage: 8.5 ML, ONCE
     Dates: start: 20120711, end: 20120711

REACTIONS (2)
  - Prescribed overdose [Unknown]
  - No adverse event [Unknown]
